FAERS Safety Report 12560881 (Version 1)
Quarter: 2016Q3

REPORT INFORMATION
  Report Type: Spontaneous
  Country: US (occurrence: US)
  Receive Date: 20160715
  Receipt Date: 20160715
  Transmission Date: 20161109
  Serious: No
  Sender: FDA-Public Use
  Company Number: US-TEVA-673863USA

PATIENT
  Age: 74 Year
  Sex: Female
  Weight: 98.06 kg

DRUGS (1)
  1. PROAIR HFA [Suspect]
     Active Substance: ALBUTEROL SULFATE
     Indication: ASTHMA
     Dates: start: 2012

REACTIONS (2)
  - Laboratory test abnormal [Unknown]
  - Expired product administered [Unknown]
